FAERS Safety Report 24131477 (Version 1)
Quarter: 2024Q3

REPORT INFORMATION
  Report Type: Spontaneous
  Country: GB (occurrence: GB)
  Receive Date: 20240724
  Receipt Date: 20240724
  Transmission Date: 20241017
  Serious: Yes (Other)
  Sender: TEVA
  Company Number: None

PATIENT
  Sex: Male

DRUGS (1)
  1. RAMIPRIL [Suspect]
     Active Substance: RAMIPRIL
     Indication: Hypertension
     Route: 065
     Dates: end: 20240410

REACTIONS (1)
  - Swelling face [Recovered/Resolved]

NARRATIVE: CASE EVENT DATE: 20240410
